FAERS Safety Report 19983013 (Version 1)
Quarter: 2021Q4

REPORT INFORMATION
  Report Type: Spontaneous
  Country: KR (occurrence: KR)
  Receive Date: 20211021
  Receipt Date: 20211021
  Transmission Date: 20220303
  Serious: Yes (Other)
  Sender: FDA-Public Use
  Company Number: KR-NOVARTISPH-NVSC2021KR238801

PATIENT
  Age: 61 Year
  Sex: Male

DRUGS (2)
  1. BEOVU [Suspect]
     Active Substance: BROLUCIZUMAB-DBLL
     Indication: Product used for unknown indication
     Dosage: UNK, (LEFT EYE)
     Route: 065
     Dates: start: 20210525
  2. BEOVU [Suspect]
     Active Substance: BROLUCIZUMAB-DBLL
     Dosage: UNK( LEFT EYE)
     Route: 065
     Dates: start: 20211006

REACTIONS (3)
  - Subretinal fluid [Unknown]
  - Visual acuity reduced [Unknown]
  - Visual impairment [Unknown]
